FAERS Safety Report 23249414 (Version 5)
Quarter: 2024Q2

REPORT INFORMATION
  Report Type: Spontaneous
  Country: JP (occurrence: JP)
  Receive Date: 20231201
  Receipt Date: 20240520
  Transmission Date: 20240715
  Serious: Yes (Hospitalization, Other)
  Sender: FDA-Public Use
  Company Number: JP-GLAXOSMITHKLINE-JP2023JPN165627

PATIENT

DRUGS (10)
  1. DAPRODUSTAT [Suspect]
     Active Substance: DAPRODUSTAT
     Indication: Nephrogenic anaemia
     Dosage: 6 MG, 1D
     Route: 048
     Dates: start: 20231106, end: 20231204
  2. ENARODUSTAT [Concomitant]
     Active Substance: ENARODUSTAT
     Indication: Nephrogenic anaemia
     Dosage: 4 MG, 1D
     Dates: end: 20231105
  3. RISEDRONATE SODIUM [Concomitant]
     Active Substance: RISEDRONATE SODIUM
     Dosage: 17.5 MG, WE
     Route: 048
     Dates: end: 20231127
  4. RABEPRAZOLE SODIUM [Concomitant]
     Active Substance: RABEPRAZOLE SODIUM
     Dosage: 10 MG, EVERY MORNING
     Route: 048
     Dates: end: 20231127
  5. ASPIRIN [Concomitant]
     Active Substance: ASPIRIN
     Dosage: 100 MG, EVERY MORNING
     Route: 048
     Dates: end: 20231127
  6. DIOVAN [Concomitant]
     Active Substance: VALSARTAN
     Dosage: 80 MG, EVERY MORNING
     Route: 048
  7. AMLODIPINE [Concomitant]
     Active Substance: AMLODIPINE BESYLATE
     Dosage: 5 MG, EVERY MORNING
     Route: 048
  8. FERRIC CITRATE ANHYDROUS [Concomitant]
     Active Substance: FERRIC CITRATE ANHYDROUS
     Dosage: 250 MG, AFTER EVERY MEAL
     Route: 048
  9. FUROSEMIDE [Concomitant]
     Active Substance: FUROSEMIDE
     Dosage: 40 MG, EVERY NOON AND EVENING
     Route: 048
     Dates: end: 20240115
  10. SENNOSIDES [Concomitant]
     Active Substance: SENNOSIDES
     Dosage: 12 MG, BEFORE BEDTIME
     Route: 048

REACTIONS (12)
  - Melaena [Recovered/Resolved]
  - Gastric ulcer haemorrhage [Recovered/Resolved]
  - Dizziness postural [Recovered/Resolved]
  - Gastric cancer [Unknown]
  - Small intestine carcinoma [Unknown]
  - Haemoglobin decreased [Unknown]
  - Pyrexia [Unknown]
  - Duodenal polyp [Unknown]
  - Hiatus hernia [Unknown]
  - Gastric xanthoma [Unknown]
  - Product use issue [Unknown]
  - Off label use [Unknown]

NARRATIVE: CASE EVENT DATE: 20231119
